FAERS Safety Report 15734110 (Version 1)
Quarter: 2018Q4

REPORT INFORMATION
  Report Type: Spontaneous
  Country: US (occurrence: US)
  Receive Date: 20181218
  Receipt Date: 20181218
  Transmission Date: 20190205
  Serious: No
  Sender: FDA-Public Use
  Company Number: US-BIOGEN-2018BI00655880

PATIENT
  Sex: Male

DRUGS (3)
  1. TECFIDERA [Suspect]
     Active Substance: DIMETHYL FUMARATE
     Indication: MULTIPLE SCLEROSIS
     Dosage: STARTING DOSE
     Route: 048
     Dates: start: 20181115, end: 20181121
  2. AVONEX [Suspect]
     Active Substance: INTERFERON BETA-1A
     Indication: MULTIPLE SCLEROSIS
     Route: 065
  3. TECFIDERA [Suspect]
     Active Substance: DIMETHYL FUMARATE
     Route: 048
     Dates: start: 20181122

REACTIONS (7)
  - Burning sensation [Recovered/Resolved]
  - Arthralgia [Recovered/Resolved with Sequelae]
  - Ageusia [Not Recovered/Not Resolved]
  - Tremor [Recovered/Resolved]
  - Multiple sclerosis relapse [Recovered/Resolved]
  - Insomnia [Recovered/Resolved with Sequelae]
  - Cold sweat [Recovered/Resolved]
